FAERS Safety Report 9643428 (Version 1)
Quarter: 2013Q4

REPORT INFORMATION
  Report Type: Spontaneous
  Country: GB (occurrence: None)
  Receive Date: 20131022
  Receipt Date: 20131022
  Transmission Date: 20140711
  Serious: Yes (Other)
  Sender: FDA-Public Use
  Company Number: ABR_01194_2013

PATIENT
  Age: 23 Year
  Sex: Female
  Weight: 80.3 kg

DRUGS (4)
  1. ERYTHROMYCIN (ERYTHROMYCIN) [Suspect]
     Indication: PRODUCT USED FOR UNKNOWN INDICATION
     Dosage: DF
  2. STELARA (STELARA-USTEKINUMAB) (NOT SPECIFIED) [Suspect]
     Indication: PSORIASIS
     Route: 058
     Dates: start: 20100909
  3. DROSPIRENONE W/ETHINYLESTRADIOL [Concomitant]
  4. ORLISTAT [Concomitant]

REACTIONS (1)
  - Alanine aminotransferase increased [None]
